FAERS Safety Report 5221550-4 (Version None)
Quarter: 2007Q1

REPORT INFORMATION
  Report Type: 
  Country: None (occurrence: None)
  Receive Date: 20070127
  Receipt Date: 20070119
  Transmission Date: 20070707
  Serious: Yes (Other)
  Sender: FDA-Public Use
  Company Number: JP-ABBOTT-07P-087-0354593-00

PATIENT
  Sex: Male
  Weight: 62.2 kg

DRUGS (2)
  1. CEFDINIR [Suspect]
     Indication: COUGH
     Route: 048
     Dates: start: 20031003
  2. CEFDINIR [Suspect]
     Indication: PYREXIA

REACTIONS (3)
  - HENOCH-SCHONLEIN PURPURA [None]
  - NEPHRITIS [None]
  - PURPURA [None]
